FAERS Safety Report 18024836 (Version 1)
Quarter: 2020Q3

REPORT INFORMATION
  Report Type: Spontaneous
  Country: JP (occurrence: JP)
  Receive Date: 20200715
  Receipt Date: 20200715
  Transmission Date: 20201103
  Serious: Yes (Hospitalization)
  Sender: FDA-Public Use
  Company Number: JP-ORION CORPORATION ORION PHARMA-ENTC2020-0207

PATIENT
  Sex: Female

DRUGS (3)
  1. LAXATIVE [Concomitant]
     Active Substance: UNSPECIFIED INGREDIENT
     Route: 065
  2. STALEVO [Suspect]
     Active Substance: CARBIDOPA\ENTACAPONE\LEVODOPA
     Indication: PARKINSON^S DISEASE
     Dosage: STRENGTH: LEVODOPA?CARBIDOPA?ENTACAPONE (50MG/5MG/100MG)
     Route: 048
  3. NEODOPASTON [Concomitant]
     Active Substance: CARBIDOPA\LEVODOPA
     Route: 065

REACTIONS (10)
  - Neck pain [Unknown]
  - Gingival swelling [Unknown]
  - Oral mucosal discolouration [Unknown]
  - Chromaturia [Unknown]
  - Fall [Unknown]
  - Wrong technique in product usage process [Unknown]
  - Tongue discolouration [Unknown]
  - Oral mucosal roughening [Unknown]
  - Tongue rough [Unknown]
  - Dyskinesia [Not Recovered/Not Resolved]
